FAERS Safety Report 12259125 (Version 1)
Quarter: 2016Q2

REPORT INFORMATION
  Report Type: Spontaneous
  Country: US (occurrence: US)
  Receive Date: 20160412
  Receipt Date: 20160412
  Transmission Date: 20160815
  Serious: No
  Sender: FDA-Public Use
  Company Number: US-SA-2015SA065550

PATIENT
  Age: 38 Year
  Sex: Female

DRUGS (2)
  1. ALLEGRA [Suspect]
     Active Substance: FEXOFENADINE HYDROCHLORIDE
     Indication: MULTIPLE ALLERGIES
     Dosage: FOR ABOUT ONE MONTH
     Route: 048
  2. ALLEGRA D-12 HOUR [Concomitant]
     Active Substance: FEXOFENADINE HYDROCHLORIDE\PSEUDOEPHEDRINE HYDROCHLORIDE
     Dosage: DURATION: OFF AND ON FOR ABOUT 2 WEEKS.?STOP DATE: OUT OF THE PRODUCT FOR ABOUT 1 WEEK
     Route: 065

REACTIONS (3)
  - Tension headache [Unknown]
  - Memory impairment [Unknown]
  - Daydreaming [Unknown]
